FAERS Safety Report 9177516 (Version 1)
Quarter: 2013Q2

REPORT INFORMATION
  Report Type: Spontaneous
  Country: US (occurrence: US)
  Receive Date: 20120531
  Receipt Date: 20130426
  Transmission Date: 20140414
  Serious: Yes (Other)
  Sender: FDA-Public Use
  Company Number: US201110004574

PATIENT
  Age: 56 Year
  Sex: Female

DRUGS (27)
  1. BYETTA PEN DISPOSABLE [Suspect]
     Dosage: 20JUL2007-26SEP2009
     Route: 058
     Dates: start: 20070109, end: 20090626
  2. GLUCOPHAGE XR TABS [Suspect]
     Dates: start: 20090413
  3. SPIRONOLACTONE [Concomitant]
  4. FEXOFENADINE HCL [Concomitant]
     Route: 048
  5. PRILOSEC [Concomitant]
     Route: 048
     Dates: start: 20081013
  6. PROZAC [Concomitant]
     Route: 048
     Dates: start: 20080423
  7. METFORMIN [Concomitant]
  8. ALLOPURINOL [Concomitant]
     Route: 048
     Dates: start: 20090608
  9. LASIX [Concomitant]
     Route: 048
     Dates: start: 20090608
  10. LEVOTHYROXINE [Concomitant]
     Dates: start: 20080423
  11. TOPROL [Concomitant]
     Route: 048
     Dates: start: 20080423
  12. TRAMADOL [Concomitant]
     Route: 048
     Dates: start: 20090826
  13. PREMARIN [Concomitant]
     Route: 048
  14. FLEXERIL [Concomitant]
  15. CARBAMAZEPINE [Concomitant]
  16. PRENATAL VITAMIN [Concomitant]
     Dosage: 1 TABS DAILY
     Dates: start: 20080109
  17. GLIPIZIDE [Concomitant]
  18. ACTOS [Concomitant]
     Dosage: 15/850MG
     Route: 048
  19. LISINOPRIL [Concomitant]
     Dosage: 20MG ORAL TWICE PER DAY
     Dates: start: 20090413
  20. LOVASTATIN [Concomitant]
  21. METOPROLOL [Concomitant]
  22. NIFEDIPINE [Concomitant]
     Route: 048
  23. FUROSEMIDE [Concomitant]
  24. CYCLOBENZAPRINE [Concomitant]
     Dates: start: 20090608
  25. CARBAMAZEPINE [Concomitant]
     Dosage: CHEWABLE  ON HALF TABS ORAL BID
     Dates: start: 20081013
  26. ALLEGRA [Concomitant]
     Route: 048
     Dates: start: 20090608
  27. GLUCOPHAGE [Concomitant]
     Route: 048
     Dates: start: 20090413

REACTIONS (9)
  - Renal failure chronic [Recovering/Resolving]
  - Pancreatitis [Unknown]
  - Rash [Unknown]
  - Renal tubular disorder [None]
  - Blood triglycerides increased [None]
  - Blood glucose increased [None]
  - Blood sodium decreased [None]
  - Prerenal failure [None]
  - Hypotension [None]
